FAERS Safety Report 12920120 (Version 2)
Quarter: 2016Q4

REPORT INFORMATION
  Report Type: Spontaneous
  Country: CA (occurrence: CA)
  Receive Date: 20161107
  Receipt Date: 20161122
  Transmission Date: 20170207
  Serious: Yes (Other)
  Sender: FDA-Public Use
  Company Number: CA-ARIAD-2016CA007200

PATIENT
  Age: 53 Year
  Sex: Female
  Weight: 53.61 kg

DRUGS (1)
  1. ICLUSIG [Suspect]
     Active Substance: PONATINIB
     Indication: LEUKAEMIA
     Dosage: 45 MG, QD
     Route: 048
     Dates: start: 20160811, end: 20161028

REACTIONS (1)
  - Leukaemic infiltration [Unknown]
